FAERS Safety Report 12679523 (Version 1)
Quarter: 2016Q3

REPORT INFORMATION
  Report Type: Spontaneous
  Country: US (occurrence: None)
  Receive Date: 20160823
  Receipt Date: 20160823
  Transmission Date: 20161109
  Serious: Yes (Other)
  Sender: FDA-Public Use
  Company Number: None

PATIENT
  Age: 72 Year
  Sex: Male
  Weight: 99.79 kg

DRUGS (5)
  1. XARELTO [Suspect]
     Active Substance: RIVAROXABAN
     Indication: DEEP VEIN THROMBOSIS
     Route: 048
     Dates: start: 20160613
  2. LISINOPRIL. [Concomitant]
     Active Substance: LISINOPRIL
  3. AMLOPINE [Concomitant]
  4. METROPOLO [Concomitant]
  5. ALLOPURINOL. [Concomitant]
     Active Substance: ALLOPURINOL

REACTIONS (13)
  - Dizziness [None]
  - Arthralgia [None]
  - Headache [None]
  - Myalgia [None]
  - Abdominal distension [None]
  - Weight increased [None]
  - Constipation [None]
  - Asthenia [None]
  - Abdominal pain [None]
  - Face oedema [None]
  - Eyelid oedema [None]
  - Paraesthesia [None]
  - Back pain [None]

NARRATIVE: CASE EVENT DATE: 20160614
